FAERS Safety Report 21851084 (Version 2)
Quarter: 2023Q2

REPORT INFORMATION
  Report Type: Report from Study
  Country: CN (occurrence: CN)
  Receive Date: 20230112
  Receipt Date: 20230407
  Transmission Date: 20230722
  Serious: Yes (Hospitalization)
  Sender: FDA-Public Use
  Company Number: CN-002147023-NVSC2020CN178549

PATIENT
  Age: 84 Year
  Sex: Female
  Weight: 55 kg

DRUGS (6)
  1. ENTRESTO [Suspect]
     Active Substance: SACUBITRIL\VALSARTAN
     Indication: Cardiac failure
     Dosage: 25 MG, BID
     Route: 048
     Dates: start: 20200504
  2. ENTRESTO [Suspect]
     Active Substance: SACUBITRIL\VALSARTAN
     Dosage: 25 MG, BID
     Route: 048
     Dates: start: 20200603, end: 20200612
  3. TORSEMIDE [Concomitant]
     Active Substance: TORSEMIDE
     Indication: Dilated cardiomyopathy
     Dosage: 10 MG, QD
     Route: 065
     Dates: start: 20200506
  4. SPIRONOLACTONE [Concomitant]
     Active Substance: SPIRONOLACTONE
     Indication: Dilated cardiomyopathy
     Dosage: 20 MG, QD
     Route: 065
     Dates: start: 20200427
  5. METOPROLOL [Concomitant]
     Active Substance: METOPROLOL
     Indication: Dilated cardiomyopathy
     Dosage: 23.75 MG, BID
     Route: 065
     Dates: start: 20200425
  6. RIVAROXABAN [Concomitant]
     Active Substance: RIVAROXABAN
     Indication: Atrial fibrillation
     Dosage: 10 MG, QD
     Route: 065
     Dates: start: 2018

REACTIONS (8)
  - Cardiac failure [Recovered/Resolved]
  - Chest discomfort [Recovered/Resolved]
  - Haemoptysis [Recovered/Resolved]
  - Wheezing [Recovered/Resolved]
  - Dyspnoea [Recovered/Resolved]
  - Productive cough [Recovered/Resolved]
  - Haematemesis [Recovered/Resolved]
  - Nausea [Recovered/Resolved]

NARRATIVE: CASE EVENT DATE: 20200527
